FAERS Safety Report 14084297 (Version 1)
Quarter: 2017Q4

REPORT INFORMATION
  Report Type: Spontaneous
  Country: US (occurrence: US)
  Receive Date: 20171013
  Receipt Date: 20171013
  Transmission Date: 20180321
  Serious: No
  Sender: FDA-Public Use
  Company Number: US-TEVA-813926USA

PATIENT
  Age: 83 Year
  Sex: Female

DRUGS (1)
  1. FENTORA [Suspect]
     Active Substance: FENTANYL CITRATE
     Indication: PAIN
     Dosage: FOUR PILLS PER DAY
     Route: 065

REACTIONS (2)
  - Drug dose omission [Unknown]
  - Dysuria [Unknown]
